FAERS Safety Report 23385230 (Version 2)
Quarter: 2024Q1

REPORT INFORMATION
  Report Type: Spontaneous
  Country: US (occurrence: US)
  Receive Date: 20240110
  Receipt Date: 20240214
  Transmission Date: 20240410
  Serious: Yes (Other)
  Sender: FDA-Public Use
  Company Number: US-AUROBINDO-AUR-APL-2024-000487

PATIENT
  Age: 49 Year
  Sex: Female

DRUGS (2)
  1. DEXMEDETOMIDINE [Suspect]
     Active Substance: DEXMEDETOMIDINE
     Indication: Agitation
     Dosage: LOW DOSE
     Route: 065
  2. DIPHENHYDRAMINE [Concomitant]
     Active Substance: DIPHENHYDRAMINE
     Indication: Product used for unknown indication
     Dosage: UNK
     Route: 065

REACTIONS (4)
  - Torsade de pointes [Unknown]
  - Cardiac arrest [Unknown]
  - Ventricular fibrillation [Unknown]
  - Electrocardiogram R on T phenomenon [Unknown]
